FAERS Safety Report 13370839 (Version 1)
Quarter: 2017Q1

REPORT INFORMATION
  Report Type: Spontaneous
  Country: US (occurrence: US)
  Receive Date: 20170324
  Receipt Date: 20170324
  Transmission Date: 20170429
  Serious: No
  Sender: FDA-Public Use
  Company Number: US-WARNER CHILCOTT-2016-000694

PATIENT
  Age: 66 Year
  Sex: Female

DRUGS (2)
  1. ESTRACE [Suspect]
     Active Substance: ESTRADIOL
     Dosage: UNKNOWN
     Route: 067
     Dates: end: 201508
  2. ESTRADIOL. [Suspect]
     Active Substance: ESTRADIOL
     Dosage: UNKNOWN
     Route: 067
     Dates: start: 201508

REACTIONS (4)
  - Product solubility abnormal [Not Recovered/Not Resolved]
  - Device issue [Not Recovered/Not Resolved]
  - Application site discharge [Not Recovered/Not Resolved]
  - Product substitution issue [Not Recovered/Not Resolved]

NARRATIVE: CASE EVENT DATE: 201508
